FAERS Safety Report 7833699-8 (Version None)
Quarter: 2011Q4

REPORT INFORMATION
  Report Type: 
  Country: None (occurrence: None)
  Receive Date: 20111024
  Receipt Date: 20111019
  Transmission Date: 20120403
  Serious: Yes (Hospitalization)
  Sender: FDA-Public Use
  Company Number: US-BAYER-2011-101776

PATIENT
  Age: 70 Year
  Sex: Male
  Weight: 100 kg

DRUGS (7)
  1. EFFEXOR [Concomitant]
  2. BETAPACE [Concomitant]
  3. GLYCILAX [Concomitant]
  4. ASPIRIN [Suspect]
     Indication: ISCHAEMIC HEART DISEASE PROPHYLAXIS
     Dosage: 1 DF, QD
     Route: 048
     Dates: start: 20101101, end: 20110701
  5. NITROGLYCERIN [Concomitant]
  6. XANAX [Concomitant]
     Dosage: UNK UNK, BID
  7. LIPITOR [Concomitant]

REACTIONS (5)
  - LOSS OF CONSCIOUSNESS [None]
  - DELIRIUM [None]
  - HAEMATOCHEZIA [None]
  - ANAEMIA [None]
  - GASTROINTESTINAL MOTILITY DISORDER [None]
